FAERS Safety Report 6488784-2 (Version None)
Quarter: 2009Q4

REPORT INFORMATION
  Report Type: 
  Country: None (occurrence: None)
  Receive Date: 20091210
  Receipt Date: 20090930
  Transmission Date: 20100525
  Serious: No
  Sender: FDA-Public Use
  Company Number: US-AMGEN-KDL364421

PATIENT
  Sex: Female
  Weight: 81.7 kg

DRUGS (11)
  1. ENBREL [Suspect]
     Indication: RHEUMATOID ARTHRITIS
     Route: 058
     Dates: start: 20090813
  2. METHOTREXATE [Concomitant]
     Route: 048
  3. FOLIC ACID [Concomitant]
  4. PREDNISONE [Concomitant]
     Route: 048
  5. MOBIC [Concomitant]
     Route: 048
  6. BUPROPION HCL [Concomitant]
     Route: 048
  7. CALTRATE 600 [Concomitant]
  8. TYLENOL (CAPLET) [Concomitant]
  9. CETIRIZINE [Concomitant]
  10. FISH OIL [Concomitant]
     Route: 048
  11. CHONDROITIN [Concomitant]
     Route: 048

REACTIONS (6)
  - BACK PAIN [None]
  - HEADACHE [None]
  - NAUSEA [None]
  - NECK PAIN [None]
  - TOOTH ABSCESS [None]
  - VIRAL INFECTION [None]
